FAERS Safety Report 7293940-X (Version None)
Quarter: 2011Q1

REPORT INFORMATION
  Report Type: 
  Country: None (occurrence: None)
  Receive Date: 20110203
  Receipt Date: 20110119
  Transmission Date: 20110831
  Serious: Yes (Hospitalization)
  Sender: FDA-Public Use
  Company Number: 025732

PATIENT
  Sex: Male
  Weight: 47.8 kg

DRUGS (2)
  1. PENTASA [Concomitant]
  2. CERTOLIZUMAB PEGOL (CERTOLIZUMAB PEGOL) [Suspect]
     Indication: CROHN'S DISEASE
     Dosage: 400 MG  1X2 WEEKS, NUMBER OF DOSES RECEIVED 3; 3RD DOSE ON 06-JAN-2011 SUBCUTANEOUS
     Route: 058
     Dates: start: 20101125

REACTIONS (9)
  - BLOOD ALBUMIN DECREASED [None]
  - PNEUMONIA PRIMARY ATYPICAL [None]
  - PLEURAL EFFUSION [None]
  - WHITE BLOOD CELL COUNT INCREASED [None]
  - ACTIVATED PARTIAL THROMBOPLASTIN TIME PROLONGED [None]
  - BODY TEMPERATURE INCREASED [None]
  - PLATELET COUNT INCREASED [None]
  - LETHARGY [None]
  - ASTHENIA [None]
